FAERS Safety Report 5592520-1 (Version None)
Quarter: 2008Q1

REPORT INFORMATION
  Report Type: 
  Country: None (occurrence: None)
  Receive Date: 20080111
  Receipt Date: 20080103
  Transmission Date: 20080703
  Serious: Yes (Hospitalization)
  Sender: FDA-Public Use
  Company Number: 2007SP023826

PATIENT
  Sex: Female

DRUGS (6)
  1. PEG-INTRON [Suspect]
     Indication: HEPATITIS C
     Dosage: 1.5 MCG/KG;QW;SC
     Route: 058
     Dates: start: 20071017
  2. PEG-INTRON [Suspect]
     Dosage: 0.75 MCG/KG;
     Dates: start: 20071128
  3. RIBAVIRIN [Suspect]
     Indication: HEPATITIS C
     Dosage: 1200 MG;QD;PO
     Route: 048
     Dates: start: 20071101, end: 20071211
  4. RIBAVIRIN [Suspect]
     Dosage: 400 MG;QD;
     Dates: start: 20071211
  5. BLINDED SCH 900518 [Suspect]
     Indication: HEPATITIS C
     Dosage: 800 MG;TID;PO : 800 MG;TID;PO
     Route: 048
     Dates: start: 20070912, end: 20070918
  6. BLINDED SCH 900518 [Suspect]
     Indication: HEPATITIS C
     Dosage: 800 MG;TID;PO : 800 MG;TID;PO
     Route: 048
     Dates: start: 20071017, end: 20071030

REACTIONS (6)
  - ABSCESS [None]
  - ASTHENIA [None]
  - C-REACTIVE PROTEIN INCREASED [None]
  - MALAISE [None]
  - STAPHYLOCOCCAL INFECTION [None]
  - WEIGHT DECREASED [None]
